FAERS Safety Report 17075357 (Version 3)
Quarter: 2019Q4

REPORT INFORMATION
  Report Type: Spontaneous
  Country: JP (occurrence: JP)
  Receive Date: 20191126
  Receipt Date: 20191219
  Transmission Date: 20200122
  Serious: Yes (Death, Hospitalization, Disabling, Other)
  Sender: FDA-Public Use
  Company Number: JP-PFIZER INC-2019465767

PATIENT
  Age: 47 Year
  Sex: Male
  Weight: 54 kg

DRUGS (4)
  1. INLYTA [Suspect]
     Active Substance: AXITINIB
     Indication: NEOPLASM MALIGNANT
     Dosage: 14 MG, 2X/DAY
     Route: 048
     Dates: start: 20190528, end: 20190724
  2. INLYTA [Suspect]
     Active Substance: AXITINIB
     Dosage: 20 MG, 2X/DAY
     Route: 048
     Dates: start: 20190725, end: 20190821
  3. INLYTA [Suspect]
     Active Substance: AXITINIB
     Dosage: 14 MG, 2X/DAY
     Route: 048
     Dates: start: 20190822, end: 20191018
  4. INLYTA [Suspect]
     Active Substance: AXITINIB
     Indication: RENAL CELL CARCINOMA
     Dosage: 10 MG, 2X/DAY
     Route: 048
     Dates: start: 20190514, end: 20190527

REACTIONS (15)
  - Cardiac failure [Fatal]
  - Multi-organ disorder [Fatal]
  - Blood calcium decreased [Unknown]
  - Blood thyroid stimulating hormone abnormal [Unknown]
  - Blood pressure decreased [Unknown]
  - Palmar-plantar erythrodysaesthesia syndrome [Recovering/Resolving]
  - Lymphocyte count decreased [Unknown]
  - Hypothyroidism [Recovering/Resolving]
  - White blood cell count increased [Unknown]
  - Blood potassium increased [Unknown]
  - Protein total decreased [Unknown]
  - Malaise [Unknown]
  - Neutrophil count increased [Unknown]
  - Blood glucose increased [Unknown]
  - Platelet count decreased [Unknown]

NARRATIVE: CASE EVENT DATE: 20190627
